FAERS Safety Report 6376494-1 (Version None)
Quarter: 2009Q3

REPORT INFORMATION
  Report Type: 
  Country: None (occurrence: None)
  Receive Date: 20090922
  Receipt Date: 20090922
  Transmission Date: 20100115
  Serious: Yes (Other)
  Sender: FDA-Public Use
  Company Number: None

PATIENT
  Age: 58 Year
  Sex: Male
  Weight: 87.9978 kg

DRUGS (1)
  1. CRESTOR [Suspect]
     Dosage: 1 TABLET 1 X PER DAY

REACTIONS (3)
  - AMNESIA [None]
  - DRUG TOLERANCE DECREASED [None]
  - MYALGIA [None]
